FAERS Safety Report 7477153-4 (Version None)
Quarter: 2011Q2

REPORT INFORMATION
  Report Type: 
  Country: None (occurrence: None)
  Receive Date: 20110512
  Receipt Date: 20110211
  Transmission Date: 20111010
  Serious: No
  Sender: FDA-Public Use
  Company Number: US-NOVEN-11US001772

PATIENT
  Age: 9 Year
  Sex: Male
  Weight: 24.943 kg

DRUGS (1)
  1. DAYTRANA [Suspect]
     Indication: ATTENTION DEFICIT/HYPERACTIVITY DISORDER
     Dosage: 15 MG, UNKNOWN
     Route: 062
     Dates: start: 20101001

REACTIONS (10)
  - ABNORMAL BEHAVIOUR [None]
  - DRUG ADMINISTRATION ERROR [None]
  - DRUG INEFFECTIVE [None]
  - WEIGHT DECREASED [None]
  - APPLICATION SITE IRRITATION [None]
  - INCORRECT DRUG ADMINISTRATION DURATION [None]
  - APPLICATION SITE ERYTHEMA [None]
  - WRONG TECHNIQUE IN DRUG USAGE PROCESS [None]
  - PRODUCT QUALITY ISSUE [None]
  - APPLICATION SITE EXFOLIATION [None]
